FAERS Safety Report 25421210 (Version 3)
Quarter: 2025Q4

REPORT INFORMATION
  Report Type: Spontaneous
  Country: US (occurrence: US)
  Receive Date: 20250611
  Receipt Date: 20251006
  Transmission Date: 20260118
  Serious: No
  Sender: BRISTOL-MYERS SQUIBB COMPANY
  Company Number: US-BRISTOL-MYERS SQUIBB COMPANY-2025-082671

PATIENT
  Age: 74 Year
  Sex: Male

DRUGS (3)
  1. ORENCIA [Suspect]
     Active Substance: ABATACEPT
     Indication: Rheumatoid arthritis
     Dates: start: 202505
  2. ORENCIA [Suspect]
     Active Substance: ABATACEPT
     Dates: start: 202505
  3. ORENCIA [Suspect]
     Active Substance: ABATACEPT
     Dates: start: 202505

REACTIONS (6)
  - Arthralgia [Unknown]
  - General physical health deterioration [Unknown]
  - Malaise [Unknown]
  - Drug ineffective [Unknown]
  - Nasal congestion [Unknown]
  - Sneezing [Unknown]
